FAERS Safety Report 24909630 (Version 1)
Quarter: 2025Q1

REPORT INFORMATION
  Report Type: Spontaneous
  Country: US (occurrence: US)
  Receive Date: 20250131
  Receipt Date: 20250131
  Transmission Date: 20250409
  Serious: Yes (Other)
  Sender: BAYER HEALTHCARE LLC
  Company Number: US-BAYER-2025A014403

PATIENT
  Age: 38 Year
  Sex: Female
  Weight: 114 kg

DRUGS (4)
  1. ASPIRIN [Suspect]
     Active Substance: ASPIRIN
     Indication: Gynaecological disorder prophylaxis
  2. VITAMINS [Concomitant]
     Active Substance: VITAMINS
  3. MAGNESIUM [Concomitant]
     Active Substance: MAGNESIUM
  4. CHLORIDE ION [Concomitant]
     Active Substance: CHLORIDE ION

REACTIONS (3)
  - Haemorrhage [None]
  - Product use in unapproved indication [None]
  - Contraindicated product administered [None]
